FAERS Safety Report 5016184-0 (Version None)
Quarter: 2006Q2

REPORT INFORMATION
  Report Type: 
  Country: None (occurrence: None)
  Receive Date: 20060414
  Receipt Date: 20060127
  Transmission Date: 20061013
  Serious: No
  Sender: FDA-Public Use
  Company Number: 2006SP000488

PATIENT
  Age: 37 Year
  Sex: Male
  Weight: 99.7913 kg

DRUGS (4)
  1. LUNESTA [Suspect]
     Indication: INSOMNIA
     Dosage: 3 MG; HS; ORAL
     Route: 048
     Dates: start: 20060126
  2. LISINOPRIL [Concomitant]
  3. ATORVASTATIN CALCIUM [Concomitant]
  4. CYMBALTA [Concomitant]

REACTIONS (1)
  - DYSGEUSIA [None]
